FAERS Safety Report 11885395 (Version 1)
Quarter: 2016Q1

REPORT INFORMATION
  Report Type: Spontaneous
  Country: GR (occurrence: GR)
  Receive Date: 20160104
  Receipt Date: 20160104
  Transmission Date: 20160526
  Serious: Yes (Other)
  Sender: FDA-Public Use
  Company Number: GR-PFIZER INC-2015477804

PATIENT
  Age: 62 Year
  Sex: Male

DRUGS (5)
  1. ONEALFA [Concomitant]
     Active Substance: ALFACALCIDOL
     Indication: BLOOD PARATHYROID HORMONE ABNORMAL
     Dosage: UNK
     Dates: start: 201412
  2. TRIATEC PLUS [Concomitant]
     Indication: HYPERTENSION
     Dosage: UNK
  3. INSPRA [Concomitant]
     Active Substance: EPLERENONE
     Indication: CARDIAC DISORDER
     Dosage: UNK
     Dates: start: 201402
  4. LESCOL [Concomitant]
     Active Substance: FLUVASTATIN SODIUM
     Indication: HYPERCHOLESTEROLAEMIA
     Dosage: UNK
  5. ANGORON [Suspect]
     Active Substance: AMIODARONE HYDROCHLORIDE
     Indication: ATRIAL FIBRILLATION
     Dosage: 200 MG, 2X/DAY
     Route: 048
     Dates: start: 20150214

REACTIONS (2)
  - Blood urea increased [Not Recovered/Not Resolved]
  - Blood creatinine increased [Not Recovered/Not Resolved]

NARRATIVE: CASE EVENT DATE: 201503
